FAERS Safety Report 6178954-5 (Version None)
Quarter: 2009Q2

REPORT INFORMATION
  Report Type: 
  Country: None (occurrence: None)
  Receive Date: 20090505
  Receipt Date: 20090422
  Transmission Date: 20091009
  Serious: Yes (Hospitalization)
  Sender: FDA-Public Use
  Company Number: US-CELGENEUS-163-21880-09031414

PATIENT
  Sex: Female

DRUGS (2)
  1. REVLIMID [Suspect]
     Route: 048
     Dates: start: 20090109, end: 20090101
  2. REVLIMID [Suspect]
     Route: 048
     Dates: start: 20090101

REACTIONS (3)
  - INTERVERTEBRAL DISC DISORDER [None]
  - RASH [None]
  - THROMBOCYTOPENIA [None]
